FAERS Safety Report 5063089-5 (Version None)
Quarter: 2006Q3

REPORT INFORMATION
  Report Type: 
  Country: None (occurrence: None)
  Receive Date: 20060727
  Receipt Date: 20060601
  Transmission Date: 20061208
  Serious: Yes (Death, Hospitalization)
  Sender: FDA-Public Use
  Company Number: US-BRISTOL-MYERS SQUIBB COMPANY-13399605

PATIENT
  Age: 80 Year
  Sex: Male
  Weight: 80 kg

DRUGS (3)
  1. CISPLATIN [Suspect]
     Indication: PLEURAL MESOTHELIOMA
     Route: 042
     Dates: start: 20051207, end: 20051207
  2. ALIMTA [Suspect]
     Indication: PLEURAL MESOTHELIOMA
     Route: 042
     Dates: start: 20051207, end: 20051207
  3. RADIATION THERAPY [Suspect]
     Indication: PLEURAL MESOTHELIOMA
     Dates: start: 20060412, end: 20060412

REACTIONS (2)
  - RADIATION PNEUMONITIS [None]
  - RESPIRATORY FAILURE [None]
